FAERS Safety Report 11177241 (Version 2)
Quarter: 2015Q2

REPORT INFORMATION
  Report Type: Spontaneous
  Country: BR (occurrence: BR)
  Receive Date: 20150610
  Receipt Date: 20150611
  Transmission Date: 20150821
  Serious: Yes (Other)
  Sender: FDA-Public Use
  Company Number: BR-DSJP-DSU-2015-117703

PATIENT

DRUGS (7)
  1. LIPITOR [Suspect]
     Active Substance: ATORVASTATIN CALCIUM
     Indication: BLOOD CHOLESTEROL
     Dosage: 20 MG, QD
     Dates: start: 2007
  2. ALLEGRA [Suspect]
     Active Substance: FEXOFENADINE HYDROCHLORIDE
     Indication: MENOPAUSE
     Dosage: UNK
     Route: 048
     Dates: start: 201311
  3. GASTROL                            /00313401/ [Concomitant]
     Indication: GASTRITIS
     Dosage: 1 DF, UNK
     Dates: start: 2012
  4. APLAUSE [Suspect]
     Active Substance: BLACK COHOSH
     Indication: MENOPAUSE
     Dosage: UNK
     Dates: start: 2013
  5. ARTROLIVE [Concomitant]
     Active Substance: CHONDROITIN SULFATE (BOVINE)\GLUCOSAMINE SULFATE
     Indication: MUSCULOSKELETAL DISORDER
     Dosage: 1 DF, UNK
     Dates: start: 201501
  6. OLMETEC HCT [Suspect]
     Active Substance: HYDROCHLOROTHIAZIDE\OLMESARTAN MEDOXOMIL
     Indication: HYPERTENSION
     Dosage: 40/25 MG
     Dates: start: 2007
  7. GLYCINE MAX EXTRACT [Concomitant]
     Indication: MENOPAUSE
     Dosage: 1 DF, QD

REACTIONS (3)
  - Headache [Unknown]
  - Hypersensitivity [Unknown]
  - Shock [Unknown]

NARRATIVE: CASE EVENT DATE: 2013
